FAERS Safety Report 22125137 (Version 3)
Quarter: 2023Q2

REPORT INFORMATION
  Report Type: Spontaneous
  Country: US (occurrence: US)
  Receive Date: 20230322
  Receipt Date: 20230617
  Transmission Date: 20230721
  Serious: No
  Sender: FDA-Public Use
  Company Number: US-SA-SAC20230320001435

PATIENT
  Age: 5 Year
  Sex: Male
  Weight: 19.5 kg

DRUGS (1)
  1. DUPIXENT [Suspect]
     Active Substance: DUPILUMAB
     Indication: Dermatitis atopic
     Dosage: 300 MG, OTHER
     Route: 058

REACTIONS (13)
  - Pharyngitis streptococcal [Unknown]
  - Skin warm [Unknown]
  - Anger [Unknown]
  - Condition aggravated [Unknown]
  - Flushing [Unknown]
  - Tongue ulceration [Not Recovered/Not Resolved]
  - Headache [Unknown]
  - Streptococcal infection [Unknown]
  - Pyrexia [Not Recovered/Not Resolved]
  - Erythema [Unknown]
  - Rash [Unknown]
  - Hypersensitivity [Unknown]
  - Feeling hot [Unknown]

NARRATIVE: CASE EVENT DATE: 20230224
